FAERS Safety Report 10755941 (Version 1)
Quarter: 2015Q1

REPORT INFORMATION
  Report Type: Spontaneous
  Country: IT (occurrence: IT)
  Receive Date: 20150202
  Receipt Date: 20150202
  Transmission Date: 20150721
  Serious: Yes (Hospitalization)
  Sender: FDA-Public Use
  Company Number: IT-PFIZER INC-2015035680

PATIENT
  Age: 66 Year
  Sex: Female

DRUGS (5)
  1. PLAVIX [Concomitant]
     Active Substance: CLOPIDOGREL BISULFATE
  2. LUCEN [Concomitant]
     Active Substance: ESOMEPRAZOLE
  3. RYTMOBETA [Concomitant]
     Active Substance: SOTALOL HYDROCHLORIDE
     Dosage: 220 MG, UNK
  4. SEACOR [Concomitant]
     Active Substance: OMEGA-3 FATTY ACIDS
  5. CARDURA [Suspect]
     Active Substance: DOXAZOSIN MESYLATE
     Dosage: 4 MG, TOTAL DOSE
     Dates: start: 20150104, end: 20150104

REACTIONS (3)
  - Hypotension [Recovered/Resolved]
  - Hypothermia [Recovered/Resolved]
  - Syncope [Recovered/Resolved]

NARRATIVE: CASE EVENT DATE: 20150104
